FAERS Safety Report 8455528-4 (Version None)
Quarter: 2012Q2

REPORT INFORMATION
  Report Type: 
  Country: None (occurrence: None)
  Receive Date: 20120621
  Receipt Date: 20120612
  Transmission Date: 20120825
  Serious: Yes (Other)
  Sender: FDA-Public Use
  Company Number: US-MYLANLABS-2012S1011963

PATIENT
  Age: 56 Year
  Sex: Male
  Weight: 104.33 kg

DRUGS (7)
  1. PHENYTOIN SODIUM CAP [Suspect]
     Indication: BRAIN INJURY
     Route: 048
     Dates: start: 20120101
  2. SYNTHROID [Concomitant]
  3. NEURONTIN [Suspect]
     Indication: BRAIN INJURY
     Route: 048
     Dates: start: 20120101
  4. NEURONTIN [Suspect]
     Indication: CONVULSION
     Route: 048
     Dates: start: 20120101
  5. DILANTIN [Suspect]
     Indication: BRAIN INJURY
     Route: 048
  6. DIOVAN [Concomitant]
  7. ALENDRONATE SODIUM [Concomitant]

REACTIONS (2)
  - ENURESIS [None]
  - GRAND MAL CONVULSION [None]
